FAERS Safety Report 22042208 (Version 2)
Quarter: 2023Q1

REPORT INFORMATION
  Report Type: Report from Study
  Country: US (occurrence: US)
  Receive Date: 20230227
  Receipt Date: 20230313
  Transmission Date: 20230418
  Serious: Yes (Hospitalization, Other)
  Sender: FDA-Public Use
  Company Number: US-ABBVIE-4318353

PATIENT
  Sex: Male

DRUGS (4)
  1. SKYRIZI [Suspect]
     Active Substance: RISANKIZUMAB-RZAA
     Indication: Crohn^s disease
     Dosage: WEEK 12 , 360MG/2.4ML ON BODY INJECTOR WITH PREFILLED CARTRIDGE , LAST ADMIN DATE: 2023
     Route: 058
     Dates: start: 20230104
  2. SKYRIZI [Suspect]
     Active Substance: RISANKIZUMAB-RZAA
     Indication: Crohn^s disease
     Dosage: WEEK 0, LAST ADMIN DATE: 2022, 600MG/10ML
     Route: 042
     Dates: start: 20221011
  3. SKYRIZI [Suspect]
     Active Substance: RISANKIZUMAB-RZAA
     Indication: Crohn^s disease
     Dosage: 600MG/10ML, WEEK 4, FIRST ADMIN DATE:2022, LAST ADMIN DATE: 2022
     Route: 042
  4. SKYRIZI [Suspect]
     Active Substance: RISANKIZUMAB-RZAA
     Indication: Crohn^s disease
     Dosage: 600MG/10ML, WEEK 8 FIRST ADMIN DATE:2022,
     Route: 042

REACTIONS (2)
  - Hepatic cancer stage IV [Not Recovered/Not Resolved]
  - Gastric cancer stage IV [Not Recovered/Not Resolved]
